FAERS Safety Report 8951359 (Version 1)
Quarter: 2012Q4

REPORT INFORMATION
  Report Type: 
  Country: FR (occurrence: FR)
  Receive Date: 20121207
  Receipt Date: 20121207
  Transmission Date: 20130627
  Serious: Yes (Hospitalization, Other)
  Sender: FDA-Public Use
  Company Number: FR-ELI_LILLY_AND_COMPANY-FR201211007528

PATIENT
  Age: 56 Year
  Sex: Female
  Weight: 55 kg

DRUGS (10)
  1. ZYPREXA [Suspect]
     Indication: DEPRESSION
     Dosage: UNK, unknown
     Dates: start: 20120206, end: 20121002
  2. ANAFRANIL [Concomitant]
     Indication: DEPRESSION
     Dosage: UNK
     Route: 042
     Dates: start: 20120903, end: 20120906
  3. ANAFRANIL [Concomitant]
     Dosage: 100 mg, qd
     Route: 048
     Dates: start: 20120906, end: 20121002
  4. ATARAX [Concomitant]
     Indication: DEPRESSION
     Dosage: 25 mg, qd
     Route: 048
     Dates: start: 20120902
  5. BACLOFEN [Concomitant]
     Indication: DEPRESSION
     Dosage: 60 mg, qd
     Dates: start: 20120902, end: 20120925
  6. LEPTICUR [Concomitant]
     Indication: DEPRESSION
     Dosage: 20 mg, qd
     Route: 048
     Dates: start: 20120908, end: 20121005
  7. LEXOMIL [Concomitant]
     Indication: DEPRESSION
     Dosage: UNK
     Dates: start: 20120902
  8. TERCIAN [Concomitant]
     Dosage: UNK
     Route: 048
     Dates: start: 20120902
  9. SULFARLEM [Concomitant]
     Dosage: UNK
     Route: 048
     Dates: start: 20120902
  10. NORSET [Concomitant]

REACTIONS (3)
  - Interstitial lung disease [Not Recovered/Not Resolved]
  - Drug reaction with eosinophilia and systemic symptoms [Unknown]
  - Eosinophilia [Not Recovered/Not Resolved]
